FAERS Safety Report 23919803 (Version 1)
Quarter: 2024Q2

REPORT INFORMATION
  Report Type: Spontaneous
  Country: US (occurrence: None)
  Receive Date: 20240529
  Receipt Date: 20240529
  Transmission Date: 20240717
  Serious: Yes (Other)
  Sender: FDA-Public Use
  Company Number: None

PATIENT
  Age: 74 Year
  Sex: 0
  Weight: 58.5 kg

DRUGS (2)
  1. HYDROXYCHLOROQUINE [Suspect]
     Active Substance: HYDROXYCHLOROQUINE
     Indication: Spondyloarthropathy
     Dates: start: 20230817, end: 20240118
  2. PREDNISONE [Concomitant]

REACTIONS (1)
  - Polymyalgia rheumatica [None]

NARRATIVE: CASE EVENT DATE: 20240101
